FAERS Safety Report 9476756 (Version 1)
Quarter: 2013Q3

REPORT INFORMATION
  Report Type: Spontaneous
  Country: US (occurrence: US)
  Receive Date: 20130826
  Receipt Date: 20130826
  Transmission Date: 20140515
  Serious: Yes (Hospitalization)
  Sender: FDA-Public Use
  Company Number: US-BRISTOL-MYERS SQUIBB COMPANY-18916080

PATIENT
  Sex: Female

DRUGS (5)
  1. KENALOG-40 INJ [Suspect]
     Indication: TRIGGER FINGER
  2. WELLBUTRIN [Concomitant]
  3. TRI-CHLOR [Concomitant]
  4. BABY ASPIRIN [Concomitant]
  5. ALLEGRA [Concomitant]

REACTIONS (2)
  - Drug hypersensitivity [Unknown]
  - Skin bacterial infection [Unknown]
